FAERS Safety Report 9846533 (Version 1)
Quarter: 2014Q1

REPORT INFORMATION
  Report Type: Spontaneous
  Country: FR (occurrence: FR)
  Receive Date: 20140127
  Receipt Date: 20140127
  Transmission Date: 20141002
  Serious: Yes (Other)
  Sender: FDA-Public Use
  Company Number: FR-TEVA-456108ISR

PATIENT
  Age: 63 Year
  Sex: Male
  Weight: 68 kg

DRUGS (1)
  1. IRBESARTAN /HYDROCHLOROTHIAZIDE TEVA 150 MG/12.5 MG [Suspect]
     Indication: HYPERTENSION
     Dosage: 1 TABLET DAILY;
     Route: 048
     Dates: start: 20131120, end: 20131216

REACTIONS (2)
  - Palpitations [Recovered/Resolved]
  - Dizziness [Recovered/Resolved]
